FAERS Safety Report 7969645-6 (Version None)
Quarter: 2011Q4

REPORT INFORMATION
  Report Type: 
  Country: None (occurrence: None)
  Receive Date: 20111212
  Receipt Date: 20111207
  Transmission Date: 20120403
  Serious: Yes (Death, Other)
  Sender: FDA-Public Use
  Company Number: NZ-JNJFOC-20111203525

PATIENT
  Age: 49 Year
  Sex: Female

DRUGS (2)
  1. FENTANYL [Suspect]
     Indication: ANALGESIC THERAPY
     Route: 062
  2. UNKNOWN MULTIPLE MEDICATION [Concomitant]
     Route: 065

REACTIONS (4)
  - ACCIDENTAL OVERDOSE [None]
  - UNRESPONSIVE TO STIMULI [None]
  - TOXICITY TO VARIOUS AGENTS [None]
  - CYANOSIS [None]
